FAERS Safety Report 5099883-4 (Version None)
Quarter: 2006Q3

REPORT INFORMATION
  Report Type: 
  Country: None (occurrence: None)
  Receive Date: 20060906
  Receipt Date: 20060906
  Transmission Date: 20061208
  Serious: Yes (Hospitalization)
  Sender: FDA-Public Use
  Company Number: None

PATIENT
  Age: 58 Year
  Sex: Male
  Weight: 120 kg

DRUGS (1)
  1. CEFTAZIDIME [Suspect]
     Indication: URINARY TRACT INFECTION
     Dosage: 1 GRAM   EVERY 12 HOURS   IV
     Route: 042
     Dates: start: 20060806, end: 20060814

REACTIONS (3)
  - HAEMOLYTIC ANAEMIA [None]
  - NEUTROPHIL COUNT DECREASED [None]
  - THROMBOCYTOPENIA [None]
